FAERS Safety Report 4282055-0 (Version None)
Quarter: 2004Q1

REPORT INFORMATION
  Report Type: 
  Country: None (occurrence: None)
  Receive Date: 20040128
  Receipt Date: 20031002
  Transmission Date: 20041129
  Serious: Yes (Disabling)
  Sender: FDA-Public Use
  Company Number: 2004-DE-00361BY

PATIENT
  Age: 83 Year
  Sex: Female

DRUGS (1)
  1. KINZALMONO (TELMISARTAN) (TELMISARTAN) [Suspect]
     Indication: HYPERTENSION
     Dosage: 40 MG PO
     Route: 048
     Dates: start: 20030920

REACTIONS (4)
  - HEADACHE [None]
  - HYPERTENSIVE CRISIS [None]
  - PREMENSTRUAL SYNDROME [None]
  - VERTIGO [None]
